APPROVED DRUG PRODUCT: DILTIAZEM HYDROCHLORIDE
Active Ingredient: DILTIAZEM HYDROCHLORIDE
Strength: 120MG
Dosage Form/Route: TABLET;ORAL
Application: A074168 | Product #004
Applicant: IVAX PHARMACEUTICALS INC SUB TEVA PHARMACEUTICALS USA
Approved: Mar 3, 1995 | RLD: No | RS: No | Type: DISCN